FAERS Safety Report 13375615 (Version 3)
Quarter: 2019Q1

REPORT INFORMATION
  Report Type: Spontaneous
  Country: US (occurrence: US)
  Receive Date: 20170328
  Receipt Date: 20190117
  Transmission Date: 20190417
  Serious: Yes (Other)
  Sender: FDA-Public Use
  Company Number: US-ROCHE-1911888

PATIENT
  Sex: Male

DRUGS (6)
  1. MYCOPHENOLATE MOFETIL. [Suspect]
     Active Substance: MYCOPHENOLATE MOFETIL
     Indication: PROPHYLAXIS AGAINST TRANSPLANT REJECTION
     Route: 065
  2. PREDNISONE. [Suspect]
     Active Substance: PREDNISONE
     Indication: PROPHYLAXIS AGAINST TRANSPLANT REJECTION
     Route: 065
  3. RAPAMYCIN [Concomitant]
     Active Substance: SIROLIMUS
  4. BELATACEPT [Concomitant]
     Active Substance: BELATACEPT
  5. TACROLIMUS. [Suspect]
     Active Substance: TACROLIMUS
     Indication: PROPHYLAXIS AGAINST TRANSPLANT REJECTION
     Dosage: DOSE: TARGET TROUGH DRUG LEVEL OF 6 NG/ML
     Route: 065
  6. TACROLIMUS. [Suspect]
     Active Substance: TACROLIMUS
     Dosage: TARGET TROUGH LEVEL OF 4-5 NG/ML
     Route: 065

REACTIONS (3)
  - Nephropathy toxic [Recovering/Resolving]
  - Neurotoxicity [Unknown]
  - Cytomegalovirus viraemia [Recovered/Resolved]
